FAERS Safety Report 18247999 (Version 1)
Quarter: 2020Q3

REPORT INFORMATION
  Report Type: Spontaneous
  Country: US (occurrence: US)
  Receive Date: 20200909
  Receipt Date: 20200909
  Transmission Date: 20201103
  Serious: No
  Sender: FDA-Public Use
  Company Number: US-PERRIGO-20US007881

PATIENT
  Age: 65 Year
  Sex: Male
  Weight: 58.05 kg

DRUGS (2)
  1. SYMBICORT [Concomitant]
     Active Substance: BUDESONIDE\FORMOTEROL FUMARATE DIHYDRATE
     Indication: CHRONIC OBSTRUCTIVE PULMONARY DISEASE
     Dosage: UNK
     Route: 065
  2. ALBUTEROL SULFATE. [Suspect]
     Active Substance: ALBUTEROL SULFATE
     Indication: CHRONIC OBSTRUCTIVE PULMONARY DISEASE
     Dosage: 180 MCG, QID
     Route: 055
     Dates: start: 20200525, end: 20200528

REACTIONS (2)
  - Dysgeusia [Not Recovered/Not Resolved]
  - Drug ineffective [Unknown]

NARRATIVE: CASE EVENT DATE: 20200525
